FAERS Safety Report 5514781-7 (Version None)
Quarter: 2007Q4

REPORT INFORMATION
  Report Type: 
  Country: None (occurrence: None)
  Receive Date: 20071113
  Receipt Date: 20071107
  Transmission Date: 20080405
  Serious: Yes (Other)
  Sender: FDA-Public Use
  Company Number: BR-SHR-BR-2007-042468

PATIENT
  Sex: Male

DRUGS (2)
  1. BETASERON [Suspect]
     Dosage: UNK, 3X/WEEK
     Route: 058
     Dates: start: 20070801, end: 20070801
  2. BETASERON [Suspect]
     Dosage: UNK, 3X/WEEK
     Route: 058
     Dates: start: 20071001, end: 20071101

REACTIONS (2)
  - NECROSIS [None]
  - SUICIDAL IDEATION [None]
